FAERS Safety Report 13882833 (Version 4)
Quarter: 2017Q4

REPORT INFORMATION
  Report Type: Spontaneous
  Country: JP (occurrence: JP)
  Receive Date: 20170818
  Receipt Date: 20171122
  Transmission Date: 20180320
  Serious: Yes (Life-Threatening, Hospitalization, Other)
  Sender: FDA-Public Use
  Company Number: JP-ELI_LILLY_AND_COMPANY-JP201708007043

PATIENT
  Age: 63 Year
  Sex: Male
  Weight: 54 kg

DRUGS (4)
  1. ERBITUX [Suspect]
     Active Substance: CETUXIMAB
     Indication: OROPHARYNGEAL CANCER
     Dosage: 650 MG, SINGLE
     Route: 041
     Dates: start: 20170607, end: 20170607
  2. ERBITUX [Suspect]
     Active Substance: CETUXIMAB
     Dosage: 400 MG, WEEKLY (1/W)
     Route: 041
     Dates: start: 201706, end: 20170726
  3. DECADRON [Concomitant]
     Active Substance: DEXAMETHASONE
     Indication: OROPHARYNGEAL CANCER
     Dosage: 6.6 MG, WEEKLY (1/W)
     Route: 041
     Dates: start: 20170607, end: 20170726
  4. POLARAMINE [Concomitant]
     Active Substance: DEXCHLORPHENIRAMINE MALEATE
     Indication: OROPHARYNGEAL CANCER
     Dosage: 5 MG, WEEKLY (1/W)
     Route: 041
     Dates: start: 20170607, end: 20170726

REACTIONS (4)
  - Pharyngeal inflammation [Recovered/Resolved]
  - Disease progression [Unknown]
  - Acute respiratory distress syndrome [Recovering/Resolving]
  - Staphylococcal sepsis [Recovered/Resolved]

NARRATIVE: CASE EVENT DATE: 20170621
